FAERS Safety Report 25267683 (Version 1)
Quarter: 2025Q2

REPORT INFORMATION
  Report Type: Spontaneous
  Country: CH (occurrence: CH)
  Receive Date: 20250505
  Receipt Date: 20250505
  Transmission Date: 20250716
  Serious: Yes (Other)
  Sender: Atnahs Healthcare
  Company Number: CH-ATNAHS-ATNAHS20250403465

PATIENT
  Age: 46 Year
  Sex: Male
  Weight: 66.2 kg

DRUGS (8)
  1. VALIUM [Suspect]
     Active Substance: DIAZEPAM
     Indication: Product used for unknown indication
  2. XANAX [Suspect]
     Active Substance: ALPRAZOLAM
     Indication: Product used for unknown indication
  3. MORPHINE SULFATE [Suspect]
     Active Substance: MORPHINE SULFATE
     Indication: Product used for unknown indication
  4. OLANZAPINE [Suspect]
     Active Substance: OLANZAPINE
     Indication: Product used for unknown indication
  5. QUETIAPINE FUMARATE [Suspect]
     Active Substance: QUETIAPINE FUMARATE
     Indication: Product used for unknown indication
  6. CHLORPROTHIXENE [Suspect]
     Active Substance: CHLORPROTHIXENE
     Indication: Product used for unknown indication
  7. DAFALGAN [Concomitant]
     Active Substance: ACETAMINOPHEN
     Indication: Product used for unknown indication
  8. BRINTELLIX [Concomitant]
     Active Substance: VORTIOXETINE HYDROBROMIDE
     Indication: Product used for unknown indication

REACTIONS (2)
  - Disturbance in attention [Recovered/Resolved]
  - Toxicity to various agents [Recovered/Resolved]

NARRATIVE: CASE EVENT DATE: 20250301
